FAERS Safety Report 6915798-8 (Version None)
Quarter: 2010Q3

REPORT INFORMATION
  Report Type: 
  Country: None (occurrence: None)
  Receive Date: 20100810
  Receipt Date: 20100323
  Transmission Date: 20110219
  Serious: No
  Sender: FDA-Public Use
  Company Number: A0851603A

PATIENT
  Age: 41 Year
  Sex: Female

DRUGS (6)
  1. PAXIL [Suspect]
     Dosage: 20MG PER DAY
     Route: 048
     Dates: start: 20000101
  2. PAXIL CR [Suspect]
     Route: 048
  3. PAROXETINE HCL [Suspect]
     Route: 048
  4. PREMARIN [Concomitant]
  5. DOXEPIN HCL [Concomitant]
  6. HYDROXYZINE [Concomitant]

REACTIONS (9)
  - ANXIETY [None]
  - DIZZINESS [None]
  - DRUG INEFFECTIVE [None]
  - EAR DISCOMFORT [None]
  - FEELING ABNORMAL [None]
  - HEAD DISCOMFORT [None]
  - IMPAIRED DRIVING ABILITY [None]
  - NAUSEA [None]
  - PALPITATIONS [None]
